FAERS Safety Report 6325251-0 (Version None)
Quarter: 2009Q3

REPORT INFORMATION
  Report Type: 
  Country: None (occurrence: None)
  Receive Date: 20090818
  Receipt Date: 20090714
  Transmission Date: 20100115
  Serious: Yes (Hospitalization)
  Sender: FDA-Public Use
  Company Number: WAES 0907USA02031

PATIENT
  Age: 66 Year
  Sex: Female

DRUGS (10)
  1. JANUVIA [Suspect]
     Indication: DIABETES MELLITUS
     Dosage: 50 MG/DAILY/PO
     Route: 048
     Dates: start: 20080801
  2. BENTYL [Concomitant]
  3. FOSAMAX [Concomitant]
  4. KLONOPIN [Concomitant]
  5. LEVOXYL [Concomitant]
  6. PAMELOR [Concomitant]
  7. PEPCID [Concomitant]
  8. PRILOSEC [Concomitant]
  9. ZONEGRAN [Concomitant]
  10. ATENOLOL [Concomitant]

REACTIONS (1)
  - ABDOMINAL PAIN [None]
